FAERS Safety Report 18030019 (Version 1)
Quarter: 2020Q3

REPORT INFORMATION
  Report Type: Spontaneous
  Country: US (occurrence: US)
  Receive Date: 20200715
  Receipt Date: 20200715
  Transmission Date: 20201103
  Serious: No
  Sender: FDA-Public Use
  Company Number: None

PATIENT
  Age: 67 Year
  Sex: Male

DRUGS (7)
  1. BIOTIN [Concomitant]
     Active Substance: BIOTIN
  2. EZETIMBE [Concomitant]
     Active Substance: EZETIMIBE
  3. VIT D3 HP [Concomitant]
  4. LIVALO [Concomitant]
     Active Substance: PITAVASTATIN CALCIUM
  5. REPATHA [Concomitant]
     Active Substance: EVOLOCUMAB
  6. ESBRIET [Suspect]
     Active Substance: PIRFENIDONE
     Indication: IDIOPATHIC PULMONARY FIBROSIS
     Route: 048
     Dates: start: 20191113
  7. COLLAGEN [Concomitant]
     Active Substance: COLLAGEN

REACTIONS (2)
  - Adverse drug reaction [None]
  - Drug interaction [None]

NARRATIVE: CASE EVENT DATE: 20200707
